FAERS Safety Report 13538905 (Version 1)
Quarter: 2017Q2

REPORT INFORMATION
  Report Type: Spontaneous
  Country: US (occurrence: US)
  Receive Date: 20170511
  Receipt Date: 20170511
  Transmission Date: 20170830
  Serious: Yes (Other)
  Sender: FDA-Public Use
  Company Number: None

PATIENT
  Age: 32 Year
  Sex: Female
  Weight: 58.5 kg

DRUGS (18)
  1. LEXAPRO [Concomitant]
     Active Substance: ESCITALOPRAM OXALATE
  2. VITAMIN D [Concomitant]
     Active Substance: CHOLECALCIFEROL
  3. MECLIZINE [Concomitant]
     Active Substance: MECLIZINE HYDROCHLORIDE
  4. LATUDA [Concomitant]
     Active Substance: LURASIDONE HYDROCHLORIDE
  5. ADVAIR HFA [Concomitant]
     Active Substance: FLUTICASONE PROPIONATE\SALMETEROL XINAFOATE
  6. CPAP [Concomitant]
     Active Substance: DEVICE
  7. MULTIVITAMIN [Concomitant]
     Active Substance: VITAMINS
  8. CLARITIN [Concomitant]
     Active Substance: LORATADINE
  9. TOPAMAX [Concomitant]
     Active Substance: TOPIRAMATE
  10. ABILIFY [Concomitant]
     Active Substance: ARIPIPRAZOLE
  11. ALEVE [Concomitant]
     Active Substance: NAPROXEN SODIUM
  12. ASMANEX [Concomitant]
     Active Substance: MOMETASONE FUROATE
  13. BUSPIRONE [Concomitant]
     Active Substance: BUSPIRONE HYDROCHLORIDE
  14. ADVIL [Concomitant]
     Active Substance: IBUPROFEN
  15. XOPENEX [Concomitant]
     Active Substance: LEVALBUTEROL HYDROCHLORIDE
  16. LACTAID [Concomitant]
     Active Substance: LACTASE
  17. LEVALBUTEROL TARTRATE. [Suspect]
     Active Substance: LEVALBUTEROL TARTRATE
     Indication: ASTHMA
     Dosage: OTHER STRENGTH:MCG/ACTUATION;QUANTITY:2 PUFF(S);?
     Route: 055
     Dates: start: 20170508, end: 20170508
  18. CALCIUM + D [Concomitant]
     Active Substance: CALCIUM\VITAMIN D

REACTIONS (2)
  - Hypersensitivity [None]
  - Product substitution issue [None]

NARRATIVE: CASE EVENT DATE: 20170508
